FAERS Safety Report 5491363-7 (Version None)
Quarter: 2007Q4

REPORT INFORMATION
  Report Type: 
  Country: None (occurrence: None)
  Receive Date: 20071017
  Receipt Date: 20070807
  Transmission Date: 20080405
  Serious: Yes (Hospitalization)
  Sender: FDA-Public Use
  Company Number: 001#1#2007-00526

PATIENT
  Age: 66 Year
  Sex: Male

DRUGS (3)
  1. NEUPRO [Suspect]
     Indication: PARKINSON'S DISEASE
     Dosage: 6 MG/24H (6 MG/24H 1 IN 1 DAYS (S)) TRANSDERMAL
     Route: 062
  2. LEVODOPA (LEVODOPA) [Concomitant]
  3. ANTIHYPERTENSIVES [Concomitant]

REACTIONS (1)
  - ILEUS [None]
